FAERS Safety Report 6582341-5 (Version None)
Quarter: 2010Q1

REPORT INFORMATION
  Report Type: 
  Country: None (occurrence: None)
  Receive Date: 20100216
  Receipt Date: 20100105
  Transmission Date: 20100710
  Serious: Yes (Death, Other)
  Sender: FDA-Public Use
  Company Number: US-TYCO HEALTHCARE/MALLINCKRODT-T201000203

PATIENT
  Age: 32 Year
  Sex: Male

DRUGS (1)
  1. METHADOSE [Suspect]
     Dosage: UNK
     Route: 048

REACTIONS (9)
  - ANOXIC ENCEPHALOPATHY [None]
  - ASPIRATION [None]
  - BRADYCARDIA [None]
  - BRAIN HERNIATION [None]
  - CARDIO-RESPIRATORY ARREST [None]
  - COMPLETED SUICIDE [None]
  - DYSPNOEA [None]
  - HYPOTENSION [None]
  - VOMITING [None]
